FAERS Safety Report 5081196-8 (Version None)
Quarter: 2006Q3

REPORT INFORMATION
  Report Type: 
  Country: None (occurrence: None)
  Receive Date: 20060814
  Receipt Date: 20060814
  Transmission Date: 20061208
  Serious: Yes (Hospitalization)
  Sender: FDA-Public Use
  Company Number: None

PATIENT
  Age: 26 Year
  Sex: Male

DRUGS (1)
  1. VALTREX [Suspect]

REACTIONS (3)
  - CONVULSION [None]
  - DRUG EFFECT DECREASED [None]
  - DRUG INTERACTION [None]
